FAERS Safety Report 11846124 (Version 1)
Quarter: 2015Q4

REPORT INFORMATION
  Report Type: Other
  Country: US (occurrence: US)
  Receive Date: 20151217
  Receipt Date: 20151217
  Transmission Date: 20160305
  Serious: No
  Sender: FDA-Public Use
  Company Number: US-NSR_02290_2015

PATIENT
  Age: 69 Year
  Sex: Female

DRUGS (2)
  1. BACLOFEN. [Suspect]
     Active Substance: BACLOFEN
     Indication: MUSCLE SPASTICITY
     Route: 048
  2. BACLOFEN. [Suspect]
     Active Substance: BACLOFEN
     Dosage: DF
     Route: 048

REACTIONS (3)
  - Chronic obstructive pulmonary disease [Recovered/Resolved]
  - Rhabdomyolysis [Recovered/Resolved]
  - Drug withdrawal syndrome [Recovered/Resolved]
